FAERS Safety Report 22053809 (Version 1)
Quarter: 2023Q1

REPORT INFORMATION
  Report Type: Spontaneous
  Country: CA (occurrence: CA)
  Receive Date: 20230302
  Receipt Date: 20230302
  Transmission Date: 20230417
  Serious: Yes (Hospitalization)
  Sender: FDA-Public Use
  Company Number: CA-PFIZER INC-202300087084

PATIENT
  Age: 83 Year
  Sex: Female

DRUGS (3)
  1. SPIRONOLACTONE [Suspect]
     Active Substance: SPIRONOLACTONE
     Route: 065
  2. LENALIDOMIDE [Suspect]
     Active Substance: LENALIDOMIDE
  3. RAMIPRIL [Suspect]
     Active Substance: RAMIPRIL
     Route: 065

REACTIONS (3)
  - Cystitis [Unknown]
  - Acute kidney injury [Unknown]
  - Dysuria [Unknown]
